FAERS Safety Report 26175696 (Version 1)
Quarter: 2025Q4

REPORT INFORMATION
  Report Type: Spontaneous
  Country: CH (occurrence: CH)
  Receive Date: 20251218
  Receipt Date: 20251218
  Transmission Date: 20260117
  Serious: Yes (Other)
  Sender: Kenvue
  Company Number: CH-KENVUE-20251203563

PATIENT

DRUGS (1)
  1. LOPERAMIDE HYDROCHLORIDE [Suspect]
     Active Substance: LOPERAMIDE HYDROCHLORIDE
     Indication: Product used for unknown indication
     Dosage: MEDIAN DOSE, 24 MG
     Route: 061

REACTIONS (3)
  - Electrocardiogram QT interval abnormal [Unknown]
  - Prescribed overdose [Unknown]
  - Electrocardiogram QRS complex abnormal [Unknown]
